FAERS Safety Report 23638047 (Version 2)
Quarter: 2024Q2

REPORT INFORMATION
  Report Type: Spontaneous
  Country: CA (occurrence: CA)
  Receive Date: 20240315
  Receipt Date: 20240401
  Transmission Date: 20240717
  Serious: Yes (Other)
  Sender: FDA-Public Use
  Company Number: CA-002147023-NVSC2024CA052465

PATIENT
  Age: 8 Year
  Sex: Female
  Weight: 28.8 kg

DRUGS (3)
  1. CYCLOSPORINE [Suspect]
     Active Substance: CYCLOSPORINE
     Indication: Urticaria
     Dosage: 105 MG, BID (NEORAL)
     Route: 048
     Dates: start: 20230708
  2. MONTELUKAST [Suspect]
     Active Substance: MONTELUKAST SODIUM
     Indication: Idiopathic urticaria
     Dosage: UNK
     Route: 065
  3. REACTINE [Concomitant]
     Indication: Product used for unknown indication
     Dosage: 10 MG, QD (PRN)
     Route: 065

REACTIONS (4)
  - Chronic spontaneous urticaria [Unknown]
  - Angioedema [Unknown]
  - Drug ineffective [Unknown]
  - Off label use [Unknown]
